FAERS Safety Report 9222552 (Version 1)
Quarter: 2013Q1

REPORT INFORMATION
  Report Type: Spontaneous
  Country: US (occurrence: None)
  Receive Date: 20120907
  Receipt Date: 20120907
  Transmission Date: 20140127
  Serious: No
  Sender: FDA-Public Use
  Company Number: TH-2012-00505

PATIENT
  Sex: Male
  Weight: 95 kg

DRUGS (7)
  1. EGRIFTA [Suspect]
     Indication: LIPODYSTROPHY ACQUIRED
     Route: 058
     Dates: start: 20111103, end: 20120326
  2. PREZISTA [Concomitant]
  3. NORVIR(RITONAVIR) [Concomitant]
  4. TRUVADA(EMTRICITABINE) [Concomitant]
  5. LIPITOR(ATORVASTATIN CALCIUM) [Concomitant]
  6. TRILIPIX [Concomitant]
  7. BYSTOLIC [Concomitant]

REACTIONS (3)
  - Diarrhoea [None]
  - Arthralgia [None]
  - Myalgia [None]
